FAERS Safety Report 7325205-1 (Version None)
Quarter: 2011Q1

REPORT INFORMATION
  Report Type: 
  Country: None (occurrence: None)
  Receive Date: 20110302
  Receipt Date: 20110225
  Transmission Date: 20110831
  Serious: No
  Sender: FDA-Public Use
  Company Number: US-PFIZER INC-2011041966

PATIENT
  Sex: Male
  Weight: 102 kg

DRUGS (2)
  1. MESALAMINE [Concomitant]
     Indication: COLITIS ULCERATIVE
     Dosage: 1.2 MG, UNK
  2. LIPITOR [Suspect]
     Indication: BLOOD CHOLESTEROL INCREASED
     Dosage: 10 MG, 1X/DAY
     Route: 048
     Dates: start: 20110201

REACTIONS (1)
  - OEDEMA PERIPHERAL [None]
